FAERS Safety Report 5368170-9 (Version None)
Quarter: 2007Q2

REPORT INFORMATION
  Report Type: 
  Country: None (occurrence: None)
  Receive Date: 20070625
  Receipt Date: 20070619
  Transmission Date: 20071010
  Serious: Yes (Other)
  Sender: FDA-Public Use
  Company Number: PHBS2007BR09957

PATIENT
  Age: 62 Year
  Sex: Female
  Weight: 80 kg

DRUGS (8)
  1. PREXIGE [Suspect]
     Indication: OSTEOPOROSIS
     Dosage: 400 MG/DAY
     Route: 048
  2. PREXIGE [Suspect]
     Dosage: 100 MG/DAY
  3. ADALAT [Concomitant]
     Indication: HYPERTENSION
     Dosage: 30 MG, TID
     Route: 048
  4. ATENOLOL [Concomitant]
     Indication: HYPERTENSIVE CARDIOMYOPATHY
     Dosage: 100 MG/DAY
     Route: 048
  5. PAROXETINE HCL [Concomitant]
     Indication: DEPRESSION
     Dosage: 20 MG/DAY
     Route: 048
  6. RIVOTRIL [Concomitant]
     Indication: DEPRESSION
     Dosage: 1.5 MG/DAY
     Route: 048
  7. DIOVAN HCT [Suspect]
     Indication: HYPERTENSION
     Dosage: VALS 160 / HCT 12.5 MG/DAY
     Route: 048
  8. DIOVAN HCT [Suspect]
     Dosage: VALS 160 /HCT 25 MG/DAY
     Route: 048

REACTIONS (6)
  - ANXIETY [None]
  - BONE DISORDER [None]
  - DIZZINESS [None]
  - DRUG INEFFECTIVE [None]
  - HYPERTENSION [None]
  - NECK PAIN [None]
